FAERS Safety Report 11965466 (Version 1)
Quarter: 2016Q1

REPORT INFORMATION
  Report Type: Spontaneous
  Country: AU (occurrence: AU)
  Receive Date: 20160127
  Receipt Date: 20160127
  Transmission Date: 20160526
  Serious: Yes (Other)
  Sender: FDA-Public Use
  Company Number: AU-BRISTOL-MYERS SQUIBB COMPANY-BMS-2016-003114

PATIENT
  Age: 86 Year
  Sex: Female

DRUGS (3)
  1. WARFARIN SODIUM. [Interacting]
     Active Substance: WARFARIN SODIUM
     Indication: PULMONARY EMBOLISM
     Route: 065
  2. CEFACLOR. [Suspect]
     Active Substance: CEFACLOR
     Indication: CELLULITIS
     Route: 048
  3. CEFTRIAXONE. [Suspect]
     Active Substance: CEFTRIAXONE
     Indication: CELLULITIS
     Route: 042

REACTIONS (3)
  - Hyphaema [Recovered/Resolved]
  - Labelled drug-drug interaction medication error [Unknown]
  - International normalised ratio increased [Unknown]
